FAERS Safety Report 8807480 (Version 3)
Quarter: 2012Q4

REPORT INFORMATION
  Report Type: 
  Country: US (occurrence: US)
  Receive Date: 20120925
  Receipt Date: 20121105
  Transmission Date: 20130627
  Serious: Yes (Death)
  Sender: FDA-Public Use
  Company Number: US-PFIZER INC-2012234787

PATIENT
  Age: 78 Year
  Sex: Male
  Weight: 70.3 kg

DRUGS (2)
  1. INLYTA [Suspect]
     Indication: THYROID CANCER
     Dosage: 5 mg, 2x/day
     Dates: start: 201207
  2. ZOMETA [Concomitant]
     Indication: BONE METASTASES
     Dosage: 5 mg, monthly

REACTIONS (3)
  - Thrombosis [Fatal]
  - Disease progression [Fatal]
  - Thyroid cancer [Fatal]
